FAERS Safety Report 6197687-2 (Version None)
Quarter: 2009Q2

REPORT INFORMATION
  Report Type: 
  Country: None (occurrence: None)
  Receive Date: 20090514
  Receipt Date: 20090511
  Transmission Date: 20091009
  Serious: Yes (Hospitalization)
  Sender: FDA-Public Use
  Company Number: 2009020091

PATIENT
  Sex: Male
  Weight: 16.3295 kg

DRUGS (2)
  1. VIVAGLOBIN [Suspect]
     Indication: IMMUNODEFICIENCY
     Dosage: (20 ML WEEKLY SUBCUTANEOUS) ; (SUBCUTANEOUS
     Route: 058
     Dates: start: 20090331, end: 20090331
  2. VIVAGLOBIN [Suspect]
     Indication: IMMUNODEFICIENCY
     Dosage: (20 ML WEEKLY SUBCUTANEOUS) ; (SUBCUTANEOUS
     Route: 058
     Dates: start: 20090406, end: 20090406

REACTIONS (9)
  - DIARRHOEA [None]
  - DYSURIA [None]
  - PANCREATITIS [None]
  - RENAL FAILURE [None]
  - RENAL FAILURE ACUTE [None]
  - RETCHING [None]
  - SWELLING [None]
  - VIRAL INFECTION [None]
  - VOMITING [None]
